FAERS Safety Report 6175344-6 (Version None)
Quarter: 2009Q2

REPORT INFORMATION
  Report Type: 
  Country: None (occurrence: None)
  Receive Date: 20090429
  Receipt Date: 20090420
  Transmission Date: 20091009
  Serious: Yes (Hospitalization)
  Sender: FDA-Public Use
  Company Number: 2009US001200

PATIENT
  Age: 52 Year
  Sex: Female

DRUGS (3)
  1. PROGRAF [Suspect]
     Indication: LIVER TRANSPLANT
     Dosage: D
  2. SIROLIMUS (SIROLIMUS) [Concomitant]
  3. AMOXICILLIN [Concomitant]

REACTIONS (7)
  - ABSCESS INTESTINAL [None]
  - AZOTAEMIA [None]
  - COMPLICATIONS OF TRANSPLANTED LIVER [None]
  - INFLAMMATORY BOWEL DISEASE [None]
  - LARGE INTESTINAL ULCER [None]
  - RENAL FAILURE ACUTE [None]
  - WEIGHT DECREASED [None]
